FAERS Safety Report 19800479 (Version 1)
Quarter: 2021Q3

REPORT INFORMATION
  Report Type: Report from Study
  Country: US (occurrence: US)
  Receive Date: 20210907
  Receipt Date: 20210907
  Transmission Date: 20211014
  Serious: Yes (Other)
  Sender: FDA-Public Use
  Company Number: US-BIOGEN-2021BI01043745

PATIENT
  Sex: Male

DRUGS (1)
  1. TYSABRI [Suspect]
     Active Substance: NATALIZUMAB
     Indication: MULTIPLE SCLEROSIS
     Route: 042
     Dates: start: 20110630

REACTIONS (8)
  - Spinal osteoarthritis [Unknown]
  - Memory impairment [Not Recovered/Not Resolved]
  - Musculoskeletal disorder [Recovered/Resolved]
  - Muscle spasms [Unknown]
  - Seizure [Unknown]
  - Pneumonia [Recovered/Resolved]
  - Thoracic vertebral fracture [Not Recovered/Not Resolved]
  - Gait inability [Unknown]
